FAERS Safety Report 7381168-4 (Version None)
Quarter: 2011Q1

REPORT INFORMATION
  Report Type: 
  Country: None (occurrence: None)
  Receive Date: 20110329
  Receipt Date: 20110225
  Transmission Date: 20110831
  Serious: Yes (Hospitalization)
  Sender: FDA-Public Use
  Company Number: JP-AMGEN-JPNCT2010009881

PATIENT
  Age: 47 Year
  Sex: Male
  Weight: 60 kg

DRUGS (22)
  1. OXALIPLATIN [Concomitant]
     Indication: COLORECTAL CANCER
     Dosage: 85 MG/M2, Q2WK
     Route: 041
     Dates: start: 20100909, end: 20101019
  2. PARIET [Concomitant]
     Dosage: UNK
     Route: 048
  3. OXYCONTIN [Concomitant]
     Dosage: UNK
     Route: 048
  4. OXINORM [Concomitant]
     Dosage: UNK
     Route: 048
  5. MAGMITT [Concomitant]
     Dosage: UNK
     Route: 048
  6. FLUOROURACIL [Concomitant]
     Route: 041
     Dates: start: 20100909
  7. ANTIHISTAMINES [Concomitant]
     Indication: PROPHYLAXIS
     Dosage: UNK
     Route: 065
  8. ALLEGRA [Concomitant]
     Dosage: UNK
     Route: 048
  9. PANITUMUMAB [Suspect]
     Dosage: 6 MG/KG, Q2WK
     Route: 041
     Dates: start: 20101111, end: 20101111
  10. FLUOROURACIL [Concomitant]
     Route: 040
     Dates: start: 20101111, end: 20101111
  11. CERNILTON [Concomitant]
     Dosage: UNK
     Route: 048
  12. LOCOID CREAM [Concomitant]
     Dosage: UNK
     Route: 062
  13. FLUOROURACIL [Concomitant]
     Indication: COLORECTAL CANCER
     Route: 040
     Dates: start: 20100909
  14. SOLANTAL [Concomitant]
     Dosage: UNK
     Route: 048
  15. MYSLEE [Concomitant]
     Dosage: UNK
     Route: 048
  16. PANITUMUMAB [Suspect]
     Dosage: 6 MG/KG, Q2WK
     Route: 041
     Dates: start: 20101004, end: 20101019
  17. FLUOROURACIL [Concomitant]
     Route: 041
     Dates: start: 20101111, end: 20101111
  18. CALCIUM LEVOFOLINATE [Concomitant]
     Indication: COLORECTAL CANCER
     Route: 041
     Dates: start: 20100909
  19. LORFENAMIN [Concomitant]
     Dosage: UNK
     Route: 048
  20. PANITUMUMAB [Suspect]
     Indication: COLORECTAL CANCER
     Dosage: 6 MG/KG, Q2WK
     Route: 041
     Dates: start: 20100909, end: 20100909
  21. CALCIUM LEVOFOLINATE [Concomitant]
     Route: 041
     Dates: start: 20101111, end: 20101111
  22. ANTEBATE OINTMENT [Concomitant]
     Dosage: UNK
     Route: 062

REACTIONS (4)
  - NEUROPATHY PERIPHERAL [None]
  - PARONYCHIA [None]
  - DERMATITIS ACNEIFORM [None]
  - THROMBOCYTOPENIA [None]
